FAERS Safety Report 21562747 (Version 1)
Quarter: 2022Q4

REPORT INFORMATION
  Report Type: Spontaneous
  Country: US (occurrence: None)
  Receive Date: 20221104
  Receipt Date: 20221104
  Transmission Date: 20230113
  Serious: Yes (Hospitalization)
  Sender: FDA-Public Use
  Company Number: None

PATIENT
  Age: 66 Year
  Sex: Male
  Weight: 123.83 kg

DRUGS (19)
  1. LENALIDOMIDE [Suspect]
     Active Substance: LENALIDOMIDE
     Indication: Plasma cell myeloma
     Dosage: FREQUENCY : DAILY;?
     Route: 048
     Dates: start: 202210
  2. ACYCLOVIR [Concomitant]
  3. AMLODIPINE [Concomitant]
     Active Substance: AMLODIPINE BESYLATE
  4. ASPIRIN [Concomitant]
  5. ATORVASTATIN [Concomitant]
  6. BACTRIM DS [Concomitant]
  7. DEXAMETHASONE [Concomitant]
  8. ERGOCALCIFEROL [Concomitant]
  9. GLIPIZIDE [Concomitant]
  10. LOSARTAN [Concomitant]
  11. MULTIVITAMINS/MINERALS (with ADEK, Folate, Iron) [Concomitant]
  12. PROCHLORPERAZINE [Concomitant]
  13. TAMSULOSIN [Concomitant]
     Active Substance: TAMSULOSIN
  14. THYROID [Concomitant]
  15. DESICCATED [Concomitant]
  16. TRULICITY [Concomitant]
  17. VITAMIN B COMPLEX COMBINATIONS [Concomitant]
  18. VITAMIN B12 [Concomitant]
  19. ZOFRAN [Concomitant]

REACTIONS (1)
  - Pulmonary embolism [None]

NARRATIVE: CASE EVENT DATE: 20221026
